FAERS Safety Report 5670740-5 (Version None)
Quarter: 2008Q1

REPORT INFORMATION
  Report Type: 
  Country: None (occurrence: None)
  Receive Date: 20080318
  Receipt Date: 20080307
  Transmission Date: 20080703
  Serious: Yes (Hospitalization)
  Sender: FDA-Public Use
  Company Number: CA-JNJFOC-20080302273

PATIENT
  Age: 34 Year
  Sex: Female

DRUGS (5)
  1. REMICADE [Suspect]
     Indication: JUVENILE ARTHRITIS
     Route: 042
  2. HUMIRA [Suspect]
     Indication: JUVENILE ARTHRITIS
  3. ENBREL [Suspect]
     Indication: JUVENILE ARTHRITIS
  4. METHOTREXATE [Concomitant]
     Indication: PROPHYLAXIS
  5. RITUXAN [Concomitant]

REACTIONS (2)
  - COLITIS ULCERATIVE [None]
  - GASTROINTESTINAL HAEMORRHAGE [None]
